FAERS Safety Report 7591583-1 (Version None)
Quarter: 2011Q3

REPORT INFORMATION
  Report Type: 
  Country: None (occurrence: None)
  Receive Date: 20110706
  Receipt Date: 20110621
  Transmission Date: 20111222
  Serious: Yes (Hospitalization, Other)
  Sender: FDA-Public Use
  Company Number: US-BAYER-201032274NA

PATIENT
  Age: 26 Year
  Sex: Female
  Weight: 73 kg

DRUGS (7)
  1. OMEPRAZOLE [Concomitant]
  2. TRAMADOL HCL [Concomitant]
  3. YAZ [Suspect]
     Indication: CONTRACEPTION
     Route: 065
     Dates: start: 20080201
  4. INDOMETHACIN [Concomitant]
  5. DICYCLOMINE [Concomitant]
  6. AZITHROMYCIN [Concomitant]
  7. FLUCONAZOLE [Concomitant]

REACTIONS (4)
  - CHOLECYSTITIS [None]
  - GALLBLADDER INJURY [None]
  - GALLBLADDER DISORDER [None]
  - BILIARY DYSKINESIA [None]
